FAERS Safety Report 9469883 (Version 1)
Quarter: 2013Q3

REPORT INFORMATION
  Report Type: Spontaneous
  Country: US (occurrence: None)
  Receive Date: 20130820
  Receipt Date: 20130820
  Transmission Date: 20140515
  Serious: No
  Sender: FDA-Public Use
  Company Number: None

PATIENT
  Age: 59 Year
  Sex: Male
  Weight: 67 kg

DRUGS (1)
  1. PREGABALIN [Suspect]
     Indication: NEURALGIA
     Route: 048
     Dates: start: 20120807, end: 20121101

REACTIONS (6)
  - Vision blurred [None]
  - Sedation [None]
  - Muscle spasms [None]
  - Somnolence [None]
  - Erectile dysfunction [None]
  - Restlessness [None]
